FAERS Safety Report 12625314 (Version 2)
Quarter: 2016Q3

REPORT INFORMATION
  Report Type: Spontaneous
  Country: US (occurrence: US)
  Receive Date: 20160805
  Receipt Date: 20160818
  Transmission Date: 20161109
  Serious: Yes (Other)
  Sender: FDA-Public Use
  Company Number: US-PFIZER INC-2016369931

PATIENT
  Sex: Female
  Weight: 51 kg

DRUGS (2)
  1. ADVIL [Suspect]
     Active Substance: IBUPROFEN
     Indication: BACK PAIN
  2. ADVIL [Suspect]
     Active Substance: IBUPROFEN
     Indication: PAIN
     Dosage: 400 MG, 2X/DAY
     Route: 048
     Dates: start: 20160805, end: 20160805

REACTIONS (2)
  - Dysphonia [Recovered/Resolved with Sequelae]
  - Burn oesophageal [Recovered/Resolved with Sequelae]

NARRATIVE: CASE EVENT DATE: 20160805
